FAERS Safety Report 8246008-X (Version None)
Quarter: 2012Q1

REPORT INFORMATION
  Report Type: 
  Country: None (occurrence: None)
  Receive Date: 20120330
  Receipt Date: 20120322
  Transmission Date: 20120608
  Serious: Yes (Other)
  Sender: FDA-Public Use
  Company Number: BR-BAYER-2011-111131

PATIENT
  Age: 43 Year
  Sex: Female

DRUGS (3)
  1. DEPAKOTE [Concomitant]
     Indication: MIGRAINE
  2. MIRENA [Suspect]
     Dosage: 20 MCG/24HR, CONT
     Route: 015
     Dates: start: 20060801, end: 20110801
  3. TOLREST [Concomitant]
     Indication: MIGRAINE

REACTIONS (2)
  - BLOOD IRON INCREASED [None]
  - SERUM FERRITIN INCREASED [None]
